FAERS Safety Report 10185863 (Version 1)
Quarter: 2014Q2

REPORT INFORMATION
  Report Type: Spontaneous
  Country: US (occurrence: US)
  Receive Date: 20140521
  Receipt Date: 20140521
  Transmission Date: 20141212
  Serious: Yes (Other)
  Sender: FDA-Public Use
  Company Number: US-BAYER-2014-071174

PATIENT
  Sex: Female
  Weight: 68.03 kg

DRUGS (2)
  1. ALKA-SELTZER PLUS SPARKLING ORIGINAL COLD FORMULA [Suspect]
     Dosage: UNK
     Route: 048
  2. ALKA-SELTZER PLUS SPARKLING ORIGINAL COLD FORMULA [Suspect]
     Dosage: 3 DOSES, SOONER THAN INDICATED
     Route: 048

REACTIONS (2)
  - Renal injury [Recovered/Resolved]
  - Intentional product misuse [None]
